FAERS Safety Report 4456512-8 (Version None)
Quarter: 2004Q3

REPORT INFORMATION
  Report Type: 
  Country: None (occurrence: None)
  Receive Date: 20040923
  Receipt Date: 20040913
  Transmission Date: 20050211
  Serious: Yes (Other)
  Sender: FDA-Public Use
  Company Number: BE-JNJFOC-20040800051

PATIENT
  Age: 50 Year
  Sex: Female
  Weight: 64 kg

DRUGS (7)
  1. REMICADE [Suspect]
     Indication: RHEUMATOID ARTHRITIS
     Dosage: 5TH INFUSION
     Route: 042
  2. LEDERTREXATE [Concomitant]
     Route: 065
     Dates: start: 19970101
  3. MOTIFENE [Concomitant]
     Route: 065
     Dates: start: 19990101
  4. FOLAVIT [Concomitant]
     Route: 065
     Dates: start: 19990101
  5. ISOTEN [Concomitant]
     Route: 065
     Dates: start: 20040101
  6. DESOGESTREL AND ETHINYL ESTRADIOL [Concomitant]
     Route: 065
  7. DESOGESTREL AND ETHINYL ESTRADIOL [Concomitant]
     Route: 065

REACTIONS (1)
  - TUBERCULOSIS [None]
